FAERS Safety Report 4429261-X (Version None)
Quarter: 2004Q3

REPORT INFORMATION
  Report Type: 
  Country: None (occurrence: None)
  Receive Date: 20040817
  Receipt Date: 20040817
  Transmission Date: 20050211
  Serious: Yes (Congenital Anomaly, Other)
  Sender: FDA-Public Use
  Company Number: None

PATIENT
  Age: 29 Year
  Sex: Male
  Weight: 65.7716 kg

DRUGS (2)
  1. LEVAQUIN [Suspect]
     Indication: URETHRITIS
     Dosage: 500 MG PER DAY ORAL
     Route: 048
     Dates: start: 20040630, end: 20040704
  2. LEVAQUIN [Suspect]
     Indication: URINARY TRACT INFECTION
     Dosage: 500 MG PER DAY ORAL
     Route: 048
     Dates: start: 20040630, end: 20040704

REACTIONS (5)
  - DERMATITIS ACNEIFORM [None]
  - IMPAIRED WORK ABILITY [None]
  - MENTAL DISORDER [None]
  - PRURITUS [None]
  - RASH GENERALISED [None]
